FAERS Safety Report 15112004 (Version 2)
Quarter: 2019Q4

REPORT INFORMATION
  Report Type: Report from Study
  Country: FR (occurrence: FR)
  Receive Date: 20180705
  Receipt Date: 20191028
  Transmission Date: 20200122
  Serious: Yes (Hospitalization, Other)
  Sender: FDA-Public Use
  Company Number: FR-MYLANLABS-2018M1047251

PATIENT
  Age: 61 Year
  Sex: Male
  Weight: 112 kg

DRUGS (6)
  1. BEVACIZUMAB. [Suspect]
     Active Substance: BEVACIZUMAB
     Indication: COLORECTAL CANCER METASTATIC
     Dosage: 840 MG, UNK (LAST ADMINISTRATION ON 24/NOV/2016 DOSE OF 840 MG (11TH CYCLE) PRIOR TO EVENT)
     Route: 065
     Dates: start: 20160624
  2. OXALIPLATIN. [Suspect]
     Active Substance: OXALIPLATIN
     Indication: COLORECTAL CANCER METASTATIC
     Dosage: 170 MG, UNK (LAST ADMINISTRATION ON 20/SEP/2016 DOSE OF 170 MG (9TH CYCLE) PRIOR TO EVENT)
     Route: 065
     Dates: start: 20160527, end: 20160920
  3. CAPECITABINE. [Suspect]
     Active Substance: CAPECITABINE
     Indication: COLORECTAL CANCER METASTATIC
     Dosage: 2600 MG, UNK (LAST ADMINISTRATION ON 29/NOV/2016 DOSE OF 2600 MG (03RD CYCLE) PRIOR TO EVENT)
     Route: 065
     Dates: start: 20161018
  4. IRINOTECAN [Suspect]
     Active Substance: IRINOTECAN
     Indication: COLORECTAL CANCER METASTATIC
     Dosage: 330 MG, UNK (LAST ADMINISTRATION ON 20/SEP/2016 DOSE OF 330 MG PRIOR TO EVENT)
     Route: 065
     Dates: start: 20160527, end: 20160920
  5. 5-FU                               /00098801/ [Suspect]
     Active Substance: FLUOROURACIL
     Indication: COLORECTAL CANCER METASTATIC
     Dosage: 800 MG, UNK
     Route: 040
     Dates: start: 20161004
  6. 5-FU                               /00098801/ [Suspect]
     Active Substance: FLUOROURACIL
     Indication: COLORECTAL CANCER METASTATIC
     Dosage: 4800 MG, UNK (LAST ADMINISTRATION ON 04/OCT/2016 DOSE OF 4800 MG (10TH CYCLE) PRIOR TO EVENT)
     Route: 042
     Dates: start: 20160527, end: 20161004

REACTIONS (3)
  - Ill-defined disorder [Unknown]
  - Food poisoning [Recovered/Resolved]
  - Hypertension [Recovered/Resolved]

NARRATIVE: CASE EVENT DATE: 20161129
